FAERS Safety Report 18637515 (Version 2)
Quarter: 2020Q4

REPORT INFORMATION
  Report Type: Spontaneous
  Country: FR (occurrence: FR)
  Receive Date: 20201218
  Receipt Date: 20201222
  Transmission Date: 20210114
  Serious: Yes (Death, Other)
  Sender: FDA-Public Use
  Company Number: FR-MYLANLABS-2020M1102704

PATIENT
  Age: 4 Year
  Sex: Female

DRUGS (3)
  1. AZATHIOPRINE. [Suspect]
     Active Substance: AZATHIOPRINE
     Indication: IMMUNOSUPPRESSION
     Dosage: UNK
     Route: 048
  2. CYCLOSPORIN A [Suspect]
     Active Substance: CYCLOSPORINE
     Indication: IMMUNOSUPPRESSION
     Dosage: UNK
     Route: 048
  3. PREDNISONE. [Suspect]
     Active Substance: PREDNISONE
     Indication: IMMUNOSUPPRESSION
     Dosage: UNK
     Route: 048

REACTIONS (1)
  - Post transplant lymphoproliferative disorder [Fatal]
